FAERS Safety Report 5225988-0 (Version None)
Quarter: 2007Q1

REPORT INFORMATION
  Report Type: 
  Country: None (occurrence: None)
  Receive Date: 20070201
  Receipt Date: 20070131
  Transmission Date: 20070707
  Serious: Yes (Hospitalization)
  Sender: FDA-Public Use
  Company Number: CA-BAXTER-2006BH015154

PATIENT
  Sex: Male
  Weight: 98 kg

DRUGS (3)
  1. DIANEAL PD-1 [Suspect]
     Indication: RENAL FAILURE CHRONIC
     Dosage: DOSE UNIT:UNKNOWN
     Route: 065
     Dates: start: 20061210
  2. EXTRANEAL [Suspect]
     Indication: RENAL FAILURE CHRONIC
     Dosage: DOSE UNIT:UNKNOWN
     Route: 065
     Dates: start: 20061210
  3. CIPRO [Concomitant]
     Dosage: DOSE UNIT:UNKNOWN
     Route: 065

REACTIONS (8)
  - CATHETER RELATED INFECTION [None]
  - CHILLS [None]
  - CYSTITIS [None]
  - HYPOTENSION [None]
  - INFECTION [None]
  - PERITONITIS [None]
  - PYREXIA [None]
  - VOMITING [None]
